FAERS Safety Report 5235213-2 (Version None)
Quarter: 2007Q1

REPORT INFORMATION
  Report Type: 
  Country: None (occurrence: None)
  Receive Date: 20070207
  Receipt Date: 20070207
  Transmission Date: 20070707
  Serious: Yes (Other)
  Sender: FDA-Public Use
  Company Number: None

PATIENT
  Age: 49 Year
  Sex: Male
  Weight: 115.7 kg

DRUGS (3)
  1. GEMFIBROZIL [Suspect]
     Indication: MIXED HYPERLIPIDAEMIA
     Dosage: 600MG PO BID
     Route: 048
     Dates: start: 20060306
  2. AMOXICILLIN [Concomitant]
  3. SIMVASTATIN [Concomitant]

REACTIONS (1)
  - ARTHRALGIA [None]
